FAERS Safety Report 21585870 (Version 1)
Quarter: 2022Q4

REPORT INFORMATION
  Report Type: Spontaneous
  Country: NL (occurrence: NL)
  Receive Date: 20221111
  Receipt Date: 20221111
  Transmission Date: 20230113
  Serious: Yes (Other)
  Sender: FDA-Public Use
  Company Number: None

PATIENT
  Sex: Male
  Weight: 75 kg

DRUGS (3)
  1. CITALOPRAM HYDROBROMIDE [Suspect]
     Active Substance: CITALOPRAM HYDROBROMIDE
     Indication: Aggression
     Dosage: 20 MG, QD
     Dates: start: 20000101
  2. CITALOPRAM HYDROBROMIDE [Suspect]
     Active Substance: CITALOPRAM HYDROBROMIDE
     Indication: Depression
  3. GLEPARK [Concomitant]
     Dosage: UNK

REACTIONS (3)
  - Restless legs syndrome [Not Recovered/Not Resolved]
  - Musculoskeletal discomfort [Unknown]
  - Off label use [Unknown]
